FAERS Safety Report 14667169 (Version 1)
Quarter: 2018Q1

REPORT INFORMATION
  Report Type: Spontaneous
  Country: GB (occurrence: GB)
  Receive Date: 20180322
  Receipt Date: 20180322
  Transmission Date: 20180509
  Serious: Yes (Death)
  Sender: FDA-Public Use
  Company Number: GB-ROCHE-2090958

PATIENT

DRUGS (1)
  1. RITUXIMAB. [Suspect]
     Active Substance: RITUXIMAB
     Indication: SYSTEMIC LUPUS ERYTHEMATOSUS
     Dosage: 2 INFUSIONS GIVEN 2 WEEKS APART
     Route: 041

REACTIONS (2)
  - Infusion related reaction [Fatal]
  - Product use in unapproved indication [Fatal]
